FAERS Safety Report 9297655 (Version 2)
Quarter: 2013Q3

REPORT INFORMATION
  Report Type: Spontaneous
  Country: US (occurrence: US)
  Receive Date: 20130520
  Receipt Date: 20130717
  Transmission Date: 20140515
  Serious: No
  Sender: FDA-Public Use
  Company Number: US-PFIZER INC-2013154410

PATIENT
  Age: 80 Year
  Sex: Male
  Weight: 83.9 kg

DRUGS (7)
  1. NEURONTIN [Suspect]
     Indication: HERPES ZOSTER
     Dosage: 200 MG, 1X/DAY
     Dates: start: 201302
  2. NEURONTIN [Suspect]
     Dosage: 600 MG, 4X/DAY
     Dates: end: 20130514
  3. PLAVIX [Concomitant]
     Indication: THROMBOSIS
     Dosage: UNK
  4. VYTORIN [Concomitant]
     Indication: BLOOD CHOLESTEROL ABNORMAL
     Dosage: UNK
  5. CARVEDILOL [Concomitant]
     Indication: CARDIAC DISORDER
     Dosage: UNK
  6. NOVOLOG [Concomitant]
     Indication: DIABETES MELLITUS
     Dosage: UNK
  7. LANTUS [Concomitant]
     Indication: DIABETES MELLITUS
     Dosage: UNK

REACTIONS (1)
  - Drug ineffective [Unknown]
